FAERS Safety Report 16427346 (Version 1)
Quarter: 2019Q2

REPORT INFORMATION
  Report Type: Report from Study
  Country: IN (occurrence: IN)
  Receive Date: 20190613
  Receipt Date: 20190613
  Transmission Date: 20190711
  Serious: Yes (Other)
  Sender: FDA-Public Use
  Company Number: PHHY2016IN083796

PATIENT
  Sex: Female
  Weight: 66 kg

DRUGS (1)
  1. GLIVEC [Suspect]
     Active Substance: IMATINIB MESYLATE
     Indication: CHRONIC MYELOID LEUKAEMIA
     Dosage: 400 MG, UNK
     Route: 065

REACTIONS (5)
  - Diarrhoea [Unknown]
  - Cushing^s syndrome [Unknown]
  - Palpitations [Unknown]
  - Peripheral swelling [Unknown]
  - Weight decreased [Unknown]
